FAERS Safety Report 24434262 (Version 5)
Quarter: 2025Q1

REPORT INFORMATION
  Report Type: Spontaneous
  Country: US (occurrence: None)
  Receive Date: 20241014
  Receipt Date: 20250313
  Transmission Date: 20250408
  Serious: Yes (Hospitalization, Other)
  Sender: INCYTE
  Company Number: US-INCYTE CORPORATION-2024IN010605

PATIENT
  Age: 73 Year
  Weight: 107.05 kg

DRUGS (6)
  1. JAKAFI [Suspect]
     Active Substance: RUXOLITINIB
     Indication: Myelofibrosis
     Route: 065
  2. JAKAFI [Suspect]
     Active Substance: RUXOLITINIB
     Dosage: 5 MILLIGRAM, BID
  3. JAKAFI [Suspect]
     Active Substance: RUXOLITINIB
     Dosage: 5 MILLIGRAM, BID
  4. JAKAFI [Suspect]
     Active Substance: RUXOLITINIB
     Dosage: 5 MILLIGRAM, BID
  5. JAKAFI [Suspect]
     Active Substance: RUXOLITINIB
     Dosage: 5 MILLIGRAM, BID
  6. VITAMINS NOS [Concomitant]
     Active Substance: VITAMINS
     Indication: Product used for unknown indication
     Route: 065

REACTIONS (16)
  - COVID-19 pneumonia [Unknown]
  - COVID-19 [Unknown]
  - Myelofibrosis [Unknown]
  - Anaemia [Unknown]
  - Feeling hot [Unknown]
  - Genital lesion [Unknown]
  - Haematuria [Recovered/Resolved]
  - Asthenia [Recovered/Resolved]
  - Atrophic vulvovaginitis [Unknown]
  - Dysuria [Unknown]
  - Glucose tolerance impaired [Recovered/Resolved]
  - Inflammation [Unknown]
  - Cardiomegaly [Unknown]
  - Benign breast neoplasm [Recovered/Resolved]
  - Thrombocytosis [Not Recovered/Not Resolved]
  - Increased tendency to bruise [Unknown]
